FAERS Safety Report 4771321-8 (Version None)
Quarter: 2005Q3

REPORT INFORMATION
  Report Type: 
  Country: None (occurrence: None)
  Receive Date: 20050914
  Receipt Date: 20050829
  Transmission Date: 20060218
  Serious: Yes (Hospitalization, Other)
  Sender: FDA-Public Use
  Company Number: A-US2005-10229

PATIENT
  Age: 16 Year
  Sex: Male
  Weight: 59 kg

DRUGS (17)
  1. TRACLEER [Suspect]
     Indication: PULMONARY HYPERTENSION
     Dosage: 62.5 MG, BID, ORAL
     Route: 048
     Dates: start: 20050513, end: 20050528
  2. ADEK-FALK [Concomitant]
  3. BUMEX [Concomitant]
  4. CALCIUM                (CALCIUM) [Concomitant]
  5. MULTI-VITAMINS [Concomitant]
  6. BACTRIM DS [Concomitant]
  7. METOLAZONE [Concomitant]
  8. POTASSIUM (POTASSIUM) [Concomitant]
  9. MUCINEX [Concomitant]
  10. FLOVENT [Concomitant]
  11. ALBUTEROL [Concomitant]
  12. PULMOZYME [Concomitant]
  13. TOBRAMYCIN [Concomitant]
  14. HUMATROPE [Concomitant]
  15. OXYGEN (OXYGEN) [Concomitant]
  16. TESTOSTERONE [Concomitant]
  17. ALBUMIN (HUMAN) [Concomitant]

REACTIONS (10)
  - ALANINE AMINOTRANSFERASE INCREASED [None]
  - ASCITES [None]
  - ASPARTATE AMINOTRANSFERASE INCREASED [None]
  - CARDIOMEGALY [None]
  - GENERALISED OEDEMA [None]
  - HYPOKALAEMIA [None]
  - PERICARDIAL EFFUSION [None]
  - PLEURAL EFFUSION [None]
  - PYREXIA [None]
  - WEIGHT INCREASED [None]
